FAERS Safety Report 26185699 (Version 1)
Quarter: 2025Q4

REPORT INFORMATION
  Report Type: Spontaneous
  Country: CN (occurrence: CN)
  Receive Date: 20251222
  Receipt Date: 20251222
  Transmission Date: 20260118
  Serious: Yes (Hospitalization, Other)
  Sender: BAXTER
  Company Number: None

PATIENT
  Age: 3 Year
  Sex: Female
  Weight: 17.8 kg

DRUGS (5)
  1. CYCLOPHOSPHAMIDE [Suspect]
     Active Substance: CYCLOPHOSPHAMIDE
     Indication: Acute lymphocytic leukaemia
     Dosage: 0.692 G, QD, ONCE
     Route: 041
     Dates: start: 20250717, end: 20250717
  2. SODIUM CHLORIDE [Suspect]
     Active Substance: SODIUM CHLORIDE
     Dosage: 250 ML, BID, Q12H (WITH CYTARABINE)
     Route: 041
     Dates: start: 20250717, end: 20250720
  3. SODIUM CHLORIDE [Suspect]
     Active Substance: SODIUM CHLORIDE
     Dosage: 250 ML, QD, ONCE (WITH CYCLOPHOSPHAMIDE)
     Route: 041
     Dates: start: 20250717, end: 20250717
  4. MERCAPTOPURINE [Suspect]
     Active Substance: MERCAPTOPURINE
     Indication: Acute lymphocytic leukaemia
     Dosage: 34 MG, QD, QN
     Route: 048
     Dates: start: 20250717, end: 20250721
  5. CYTARABINE [Suspect]
     Active Substance: CYTARABINE
     Indication: Acute lymphocytic leukaemia
     Dosage: 0.69 G, BID, Q12H
     Route: 041
     Dates: start: 20250717, end: 20250720

REACTIONS (3)
  - Myelosuppression [Recovering/Resolving]
  - Haemoglobin decreased [Recovering/Resolving]
  - Platelet count decreased [Recovering/Resolving]

NARRATIVE: CASE EVENT DATE: 20250724
